FAERS Safety Report 7075510-1 (Version None)
Quarter: 2010Q4

REPORT INFORMATION
  Report Type: 
  Country: None (occurrence: None)
  Receive Date: 20101030
  Receipt Date: 20100915
  Transmission Date: 20110411
  Serious: No
  Sender: FDA-Public Use
  Company Number: US-WYE-H17689810

PATIENT
  Age: 77 Year
  Sex: Female

DRUGS (5)
  1. PRISTIQ [Suspect]
     Indication: DEPRESSION
     Dates: start: 20100910
  2. SYNTHROID [Concomitant]
  3. ISORBID [Concomitant]
  4. WARFARIN [Concomitant]
  5. GLYCERYL TRINITRATE [Concomitant]

REACTIONS (3)
  - DRUG INEFFECTIVE [None]
  - HALLUCINATION [None]
  - INSOMNIA [None]
